FAERS Safety Report 15401538 (Version 9)
Quarter: 2020Q2

REPORT INFORMATION
  Report Type: Spontaneous
  Country: US (occurrence: US)
  Receive Date: 20180919
  Receipt Date: 20200515
  Transmission Date: 20200713
  Serious: Yes (Other)
  Sender: FDA-Public Use
  Company Number: US-PFIZER INC-2017390941

PATIENT
  Age: 58 Year
  Sex: Female
  Weight: 122 kg

DRUGS (10)
  1. CORTEF [Suspect]
     Active Substance: HYDROCORTISONE
     Dosage: 10 MG, 2X/DAY
  2. CORTEF [Suspect]
     Active Substance: HYDROCORTISONE
     Indication: ADRENAL DISORDER
     Dosage: 20 MG, 4X/DAY (2 TABLETS, FOUR TIMES A DAY)
     Route: 048
  3. CORTEF [Suspect]
     Active Substance: HYDROCORTISONE
     Dosage: 80 MG, ONCE A DAY (DIVIDED BETWEEN 4 AM TO 6 AM)
     Route: 048
  4. CORTEF [Suspect]
     Active Substance: HYDROCORTISONE
     Dosage: 10 MG, 4X/DAY ( 2 TABS (20 MG) ORAL QID (FOUR TIMES A DAY))
     Route: 048
  5. CORTEF [Suspect]
     Active Substance: HYDROCORTISONE
     Dosage: 30 MG, UNK  (1 TAB A MONTH UNTIL DOWN TO 20 MG AM AND 10 MG PM)
  6. PROGESTERONE. [Concomitant]
     Active Substance: PROGESTERONE
     Indication: HORMONE LEVEL ABNORMAL
     Dosage: 200 MG, UNK
     Dates: start: 2012
  7. CORTEF [Suspect]
     Active Substance: HYDROCORTISONE
     Indication: ADDISON^S DISEASE
     Dosage: 20 MG, THREE TIMES A DAY (2 TABLETS EACH BETWEEN 4-6 AM, BETWEEN 10 AM-12 PM, AND BETWEEN 2-4 PM)
     Route: 048
  8. CORTEF [Suspect]
     Active Substance: HYDROCORTISONE
     Indication: HYPOPITUITARISM
     Dosage: 20 MG, UNK (2 TABLETS EACH FIRST THING IN THE MORNING)
     Route: 048
     Dates: start: 201703
  9. CORTEF [Suspect]
     Active Substance: HYDROCORTISONE
     Dosage: 40 MG, DAILY (10 MG: TWO IN THE MORNING AND TWO BETWEEN 10 AND 12)
  10. ARMOUR THYROID [Concomitant]
     Active Substance: THYROID, PORCINE
     Indication: HYPOTHYROIDISM
     Dosage: 120 MG, 1X/DAY
     Dates: start: 2006

REACTIONS (8)
  - Cerebrovascular accident [Not Recovered/Not Resolved]
  - Fall [Unknown]
  - Intentional product use issue [Unknown]
  - Abnormal behaviour [Unknown]
  - Malaise [Unknown]
  - Vertigo [Not Recovered/Not Resolved]
  - Head injury [Unknown]
  - Fatigue [Unknown]

NARRATIVE: CASE EVENT DATE: 201703
